FAERS Safety Report 25266929 (Version 1)
Quarter: 2025Q2

REPORT INFORMATION
  Report Type: Report from Study
  Country: US (occurrence: US)
  Receive Date: 20250505
  Receipt Date: 20250505
  Transmission Date: 20250716
  Serious: Yes (Death)
  Sender: ROCHE
  Company Number: US-ROCHE-10000268677

PATIENT
  Age: 64 Year
  Sex: Male

DRUGS (2)
  1. RITUXAN [Suspect]
     Active Substance: RITUXIMAB
     Indication: Mantle cell lymphoma
     Dosage: INFUSE 1000MG INTRAVENOUSLY WEEKLY FOR 7  DOSES?FORMULATION VIAL?500 MG SINGLE-USE VIAL
     Route: 042
     Dates: start: 202302, end: 20250212
  2. RITUXAN [Suspect]
     Active Substance: RITUXIMAB
     Route: 042

REACTIONS (1)
  - Disease progression [Fatal]
